FAERS Safety Report 5347546-X (Version None)
Quarter: 2007Q2

REPORT INFORMATION
  Report Type: 
  Country: None (occurrence: None)
  Receive Date: 20070504
  Receipt Date: 20061218
  Transmission Date: 20071010
  Serious: Yes (Other)
  Sender: FDA-Public Use
  Company Number: PHEH2006US15328

PATIENT
  Age: 47 Year
  Sex: Female

DRUGS (2)
  1. DIOVAN HCT [Suspect]
     Indication: HYPERTENSION
     Dosage: 320MG VAL/25MG HCT, 1/2 TAB QD, ORAL
     Route: 048
     Dates: start: 20061213, end: 20061214
  2. DIOVAN HCT [Suspect]
     Indication: HYPERTENSION
     Dosage: 320MG VAL/25MG HCT, 1/2 TAB QD, ORAL
     Route: 048
     Dates: start: 20061216

REACTIONS (3)
  - FATIGUE [None]
  - TACHYCARDIA [None]
  - WEIGHT DECREASED [None]
